FAERS Safety Report 4471436-8 (Version None)
Quarter: 2004Q4

REPORT INFORMATION
  Report Type: 
  Country: None (occurrence: None)
  Receive Date: 20041007
  Receipt Date: 20041007
  Transmission Date: 20050328
  Serious: Yes (Hospitalization, Disabling, Other)
  Sender: FDA-Public Use
  Company Number: None

PATIENT
  Age: 87 Year
  Sex: Female
  Weight: 45.3597 kg

DRUGS (6)
  1. AREDIA [Suspect]
     Indication: BREAST CANCER METASTATIC
     Dosage: 1/MONTH IV
     Route: 042
  2. AREDIA [Suspect]
     Indication: OSTEOPOROSIS
     Dosage: 1/MONTH IV
     Route: 042
  3. PREVACID [Concomitant]
  4. LISINOPRIL [Concomitant]
  5. CALCIUM [Concomitant]
  6. FERROUS SULFATE TAB [Concomitant]

REACTIONS (6)
  - ACTINOMYCOSIS [None]
  - IMPAIRED HEALING [None]
  - ORAL DISCHARGE [None]
  - OSTEOMYELITIS [None]
  - OSTEONECROSIS [None]
  - TOOTH EXTRACTION [None]
